FAERS Safety Report 9493320 (Version 3)
Quarter: 2013Q4

REPORT INFORMATION
  Report Type: Report from Study
  Country: US (occurrence: US)
  Receive Date: 20130902
  Receipt Date: 20131108
  Transmission Date: 20140711
  Serious: Yes (Other)
  Sender: FDA-Public Use
  Company Number: US-ROCHE-1268580

PATIENT
  Sex: Female
  Weight: 50.39 kg

DRUGS (4)
  1. PEGASYS [Suspect]
     Indication: CHRONIC HEPATITIS C
     Dosage: TREATMENT WEEK 33
     Route: 058
     Dates: start: 20120412
  2. PEGASYS [Suspect]
     Route: 058
     Dates: start: 20130111
  3. RIBAVIRIN [Suspect]
     Indication: CHRONIC HEPATITIS C
     Dosage: DIVIDED DOSES.
     Route: 048
     Dates: start: 20130111
  4. RIBAVIRIN [Suspect]
     Dosage: 2 QAM, 1 QPM
     Route: 048
     Dates: start: 20120412

REACTIONS (8)
  - Fall [Unknown]
  - Syncope [Unknown]
  - Haemoglobin decreased [Unknown]
  - White blood cell count decreased [Unknown]
  - Rash [Not Recovered/Not Resolved]
  - Viral load [Unknown]
  - Dry skin [Unknown]
  - Hyperaesthesia [Unknown]
